FAERS Safety Report 20902772 (Version 12)
Quarter: 2023Q1

REPORT INFORMATION
  Report Type: Report from Study
  Country: CA (occurrence: CA)
  Receive Date: 20220601
  Receipt Date: 20230116
  Transmission Date: 20230417
  Serious: Yes (Hospitalization, Other)
  Sender: FDA-Public Use
  Company Number: CA-TAKEDA-2022TUS002000

PATIENT
  Age: 59 Year
  Sex: Female

DRUGS (5)
  1. VEDOLIZUMAB [Suspect]
     Active Substance: VEDOLIZUMAB
     Indication: Crohn^s disease
     Dosage: 300 MILLIGRAM
     Route: 042
     Dates: start: 20210302
  2. VEDOLIZUMAB [Suspect]
     Active Substance: VEDOLIZUMAB
     Dosage: 300 MILLIGRAM
     Route: 042
     Dates: start: 20210803
  3. VEDOLIZUMAB [Suspect]
     Active Substance: VEDOLIZUMAB
     Dosage: 300 MILLIGRAM, Q4WEEKS
     Route: 042
  4. VEDOLIZUMAB [Suspect]
     Active Substance: VEDOLIZUMAB
     Indication: Crohn^s disease
     Dosage: 108 MILLIGRAM, Q2WEEKS
     Route: 058
     Dates: start: 20220429
  5. PREDNISONE [Concomitant]
     Active Substance: PREDNISONE
     Indication: Vasculitis
     Dosage: UNK
     Dates: start: 202102

REACTIONS (17)
  - Peripheral artery occlusion [Unknown]
  - Thrombosis [Unknown]
  - Sensory loss [Unknown]
  - Vasculitis [Unknown]
  - Poor venous access [Unknown]
  - Skin ulcer [Unknown]
  - White blood cell count increased [Unknown]
  - Bleeding time prolonged [Unknown]
  - Fall [Unknown]
  - Peripheral vascular disorder [Unknown]
  - Skin laceration [Unknown]
  - Injection site pain [Unknown]
  - Injection site urticaria [Unknown]
  - Balance disorder [Unknown]
  - Fatigue [Unknown]
  - Wrong technique in product usage process [Unknown]
  - Off label use [Unknown]
